FAERS Safety Report 9627544 (Version 2)
Quarter: 2013Q4

REPORT INFORMATION
  Report Type: Not Available
  Country: US (occurrence: US)
  Receive Date: 20131016
  Receipt Date: 20131016
  Transmission Date: 20140711
  Serious: No
  Sender: FDA-Public Use
  Company Number: US-LUNDBECK-DKLU1089451

PATIENT
  Sex: Male

DRUGS (5)
  1. SABRIL (FOR ORAL SOLUTION) [Suspect]
     Indication: INFANTILE SPASMS
     Route: 048
     Dates: start: 20110715
  2. CLONAZEPAM [Concomitant]
     Indication: PRODUCT USED FOR UNKNOWN INDICATION
  3. PHENOBARBITAL [Concomitant]
     Indication: PRODUCT USED FOR UNKNOWN INDICATION
  4. OXCARBAZEPINE [Concomitant]
     Indication: PRODUCT USED FOR UNKNOWN INDICATION
  5. DIASTAT [Concomitant]
     Indication: PRODUCT USED FOR UNKNOWN INDICATION

REACTIONS (1)
  - Drug ineffective [Unknown]
